FAERS Safety Report 5800510-6 (Version None)
Quarter: 2008Q3

REPORT INFORMATION
  Report Type: 
  Country: None (occurrence: None)
  Receive Date: 20080703
  Receipt Date: 20080626
  Transmission Date: 20090109
  Serious: Yes (Hospitalization)
  Sender: FDA-Public Use
  Company Number: B0527419A

PATIENT
  Age: 50 Year
  Sex: Male

DRUGS (6)
  1. WELLBUTRIN [Suspect]
     Indication: DEPRESSION
     Dosage: 150MG PER DAY
     Route: 048
     Dates: start: 20061129
  2. PRAMIPEXOLE DIHYDROCHLORIDE [Suspect]
     Indication: PARKINSON'S DISEASE
     Dosage: 4.5MG PER DAY
     Route: 048
     Dates: start: 20080130, end: 20080518
  3. MADOPAR [Concomitant]
     Indication: PARKINSON'S DISEASE
     Dosage: 600MG PER DAY
     Route: 048
     Dates: start: 20061129
  4. DOMPERIDONE MALEATE [Concomitant]
     Dosage: 60MG PER DAY
     Route: 048
     Dates: start: 20070820
  5. ALPRAZOLAM [Concomitant]
     Indication: ANXIETY
     Dosage: 1.15MG PER DAY
     Route: 048
     Dates: start: 20061129
  6. CALCIUM POLYCARBOPHIL [Concomitant]
     Indication: CONSTIPATION
     Dosage: 1875MG PER DAY
     Route: 048
     Dates: start: 20061129

REACTIONS (5)
  - ABNORMAL BEHAVIOUR [None]
  - AGGRESSION [None]
  - DELUSION [None]
  - HALLUCINATION, VISUAL [None]
  - HALLUCINATIONS, MIXED [None]
